FAERS Safety Report 4849621-2 (Version None)
Quarter: 2005Q4

REPORT INFORMATION
  Report Type: 
  Country: None (occurrence: None)
  Receive Date: 20051115
  Receipt Date: 20050815
  Transmission Date: 20060501
  Serious: No
  Sender: FDA-Public Use
  Company Number: S05-USA-03993-01

PATIENT
  Age: 80 Year
  Sex: Male

DRUGS (4)
  1. NAMENDA [Suspect]
     Indication: MEMORY IMPAIRMENT
     Dosage: 5 MG QD PO
     Route: 048
     Dates: start: 20050730, end: 20050805
  2. NAMENDA [Suspect]
     Indication: MEMORY IMPAIRMENT
     Dosage: 5 MG BID PO
     Route: 048
     Dates: start: 20050806, end: 20050811
  3. NAMENDA [Suspect]
     Indication: MEMORY IMPAIRMENT
     Dosage: 15 MG QD PO
     Route: 048
     Dates: start: 20050812
  4. LIPITOR (ATORVASTATIN) ASPIRIN OMEPRAZOLE OCUVITE (VITAMIN A/VITAMIN E [Concomitant]

REACTIONS (1)
  - POLLAKIURIA [None]
